FAERS Safety Report 10544461 (Version 1)
Quarter: 2014Q4

REPORT INFORMATION
  Report Type: Spontaneous
  Country: CH (occurrence: CH)
  Receive Date: 20141027
  Receipt Date: 20141027
  Transmission Date: 20150529
  Serious: Yes (Other)
  Sender: FDA-Public Use
  Company Number: CH-GLAXOSMITHKLINE-CH2014GSK011473

PATIENT

DRUGS (1)
  1. PROPAFENONE. [Suspect]
     Active Substance: PROPAFENONE
     Indication: PRODUCT USED FOR UNKNOWN INDICATION
     Dosage: UNK
     Dates: start: 2013

REACTIONS (1)
  - Toxicity to various agents [Unknown]

NARRATIVE: CASE EVENT DATE: 2013
